FAERS Safety Report 6889908-5 (Version None)
Quarter: 2010Q3

REPORT INFORMATION
  Report Type: 
  Country: None (occurrence: None)
  Receive Date: 20100730
  Receipt Date: 20080602
  Transmission Date: 20110219
  Serious: Yes (Other)
  Sender: FDA-Public Use
  Company Number: US-PFIZER INC-2008047078

PATIENT
  Age: 54 Year
  Sex: Male
  Weight: 115.9 kg

DRUGS (4)
  1. LIPITOR [Suspect]
  2. LISINOPRIL [Suspect]
  3. HYDROCHLOROTHIAZIDE [Concomitant]
  4. PROZAC [Concomitant]

REACTIONS (1)
  - ARRHYTHMIA [None]
